FAERS Safety Report 8951603 (Version 1)
Quarter: 2012Q4

REPORT INFORMATION
  Report Type: 
  Country: GB (occurrence: GB)
  Receive Date: 20121204
  Receipt Date: 20121204
  Transmission Date: 20130627
  Serious: Yes (Hospitalization, Other)
  Sender: FDA-Public Use
  Company Number: GB-WATSON-2012-21044

PATIENT
  Age: 2 Year
  Sex: Female

DRUGS (1)
  1. LORATADINE [Suspect]
     Indication: HYPERSENSITIVITY
     Dosage: 5mg
     Route: 048
     Dates: start: 20121108, end: 20121108

REACTIONS (3)
  - Dyspnoea [Recovering/Resolving]
  - Use of accessory respiratory muscles [Not Recovered/Not Resolved]
  - Wheezing [Recovered/Resolved]
